FAERS Safety Report 9692595 (Version 1)
Quarter: 2013Q4

REPORT INFORMATION
  Report Type: Spontaneous
  Country: US (occurrence: None)
  Receive Date: 20131115
  Receipt Date: 20131115
  Transmission Date: 20140711
  Serious: Yes (Disabling)
  Sender: FDA-Public Use
  Company Number: None

PATIENT
  Age: 27 Year
  Sex: Male
  Weight: 86.18 kg

DRUGS (1)
  1. CIPROFLOXACIN [Suspect]
     Indication: PROSTATITIS
     Route: 048
     Dates: start: 20131007, end: 20131022

REACTIONS (4)
  - Tendon rupture [None]
  - Arthralgia [None]
  - Joint swelling [None]
  - Ligament injury [None]
